FAERS Safety Report 6221000-5 (Version None)
Quarter: 2009Q2

REPORT INFORMATION
  Report Type: 
  Country: None (occurrence: None)
  Receive Date: 20090610
  Receipt Date: 20090602
  Transmission Date: 20091009
  Serious: Yes (Other)
  Sender: FDA-Public Use
  Company Number: US-JNJFOC-20090503759

PATIENT
  Age: 35 Year
  Sex: Male
  Weight: 70 kg

DRUGS (4)
  1. REMICADE [Suspect]
     Indication: PSORIATIC ARTHROPATHY
     Route: 042
  2. NSAIDS [Concomitant]
     Indication: PSORIATIC ARTHROPATHY
  3. PERCOCET [Concomitant]
     Indication: PSORIATIC ARTHROPATHY
  4. HYDROCHLOROTHIAZIDE [Concomitant]
     Indication: PSORIATIC ARTHROPATHY

REACTIONS (2)
  - MEMORY IMPAIRMENT [None]
  - MENTAL DISORDER [None]
